FAERS Safety Report 5961055-6 (Version None)
Quarter: 2008Q4

REPORT INFORMATION
  Report Type: 
  Country: None (occurrence: None)
  Receive Date: 20081119
  Receipt Date: 20081104
  Transmission Date: 20090506
  Serious: Yes (Other)
  Sender: FDA-Public Use
  Company Number: 2008SP002875

PATIENT
  Age: 59 Year
  Sex: Female

DRUGS (4)
  1. ALVESCO [Suspect]
     Indication: ASTHMA
     Dosage: 200 UG; QD; INHALATION
     Route: 055
     Dates: start: 20080820, end: 20080831
  2. HERBESSER R [Concomitant]
  3. SULTANOL [Concomitant]
  4. FLUTICASONE PROPIONATE [Concomitant]

REACTIONS (7)
  - ACUTE SINUSITIS [None]
  - ANOSMIA [None]
  - COUGH [None]
  - DYSGEUSIA [None]
  - HEADACHE [None]
  - OROPHARYNGEAL PAIN [None]
  - THIRST [None]
